FAERS Safety Report 15276751 (Version 1)
Quarter: 2018Q3

REPORT INFORMATION
  Report Type: Spontaneous
  Country: US (occurrence: US)
  Receive Date: 20180729
  Receipt Date: 20180729
  Transmission Date: 20181010
  Serious: Yes (Disabling, Other)
  Sender: FDA-Public Use
  Company Number: None

PATIENT
  Age: 73 Year
  Sex: Female
  Weight: 72.9 kg

DRUGS (4)
  1. LEVOFLOXACIN GENERIC FOR LEVAQUIN [Suspect]
     Active Substance: LEVOFLOXACIN
     Indication: URINARY TRACT INFECTION
     Dosage: ?          QUANTITY:3 DF DOSAGE FORM;?
     Route: 048
     Dates: start: 20180709, end: 20180715
  2. PROBIOTICS [Concomitant]
     Active Substance: PROBIOTICS NOS
  3. CITRACAL [Concomitant]
     Active Substance: CALCIUM CITRATE
  4. AREDS [Concomitant]
     Active Substance: MINERALS\VITAMINS

REACTIONS (7)
  - Muscle disorder [None]
  - Crepitations [None]
  - Arthralgia [None]
  - Tendon pain [None]
  - Musculoskeletal disorder [None]
  - Back pain [None]
  - Myalgia [None]

NARRATIVE: CASE EVENT DATE: 20180716
